FAERS Safety Report 10143859 (Version 9)
Quarter: 2015Q2

REPORT INFORMATION
  Report Type: Report from Study
  Country: US (occurrence: US)
  Receive Date: 20140430
  Receipt Date: 20150522
  Transmission Date: 20150821
  Serious: Yes (Other)
  Sender: FDA-Public Use
  Company Number: US-SA-2013SA117700

PATIENT
  Age: 56 Year
  Sex: Female
  Weight: 54 kg

DRUGS (22)
  1. LOMOTIL [Concomitant]
     Active Substance: ATROPINE SULFATE\DIPHENOXYLATE HYDROCHLORIDE
  2. TIZANIDINE (TIZANIDINE) [Concomitant]
     Active Substance: TIZANIDINE
     Indication: MUSCLE SPASMS
     Dosage: BEDTIME
     Dates: start: 201101
  3. LIDOCAINE. [Concomitant]
     Active Substance: LIDOCAINE
     Indication: PAIN
     Dosage: 5% PATCH?1 PATCH DAILY?12 HRS ON/12 OFF
     Dates: start: 201011
  4. ALPRAZOLAM. [Concomitant]
     Active Substance: ALPRAZOLAM
     Indication: ANXIETY
     Dates: start: 201008
  5. NEURONTIN [Suspect]
     Active Substance: GABAPENTIN
     Route: 065
  6. REMERON [Concomitant]
     Active Substance: MIRTAZAPINE
     Indication: DEPRESSION
     Dosage: STRENGTH: 15 MG
     Dates: start: 201204
  7. AUBAGIO [Suspect]
     Active Substance: TERIFLUNOMIDE
     Indication: MULTIPLE SCLEROSIS
     Route: 048
     Dates: start: 20131112
  8. NEURONTIN [Suspect]
     Active Substance: GABAPENTIN
     Route: 065
  9. NEURONTIN [Suspect]
     Active Substance: GABAPENTIN
     Route: 065
  10. VITAMIN D3 [Concomitant]
     Active Substance: CHOLECALCIFEROL
     Dates: start: 201011
  11. CALCIUM PHOSPHATE DIBASIC/FERROUS SUCCINATE/MAGNESIUM HYDROXIDE [Concomitant]
     Indication: RED BLOOD CELL COUNT DECREASED
     Dosage: 1 IN AM AND 1 IN PM
     Dates: start: 201011
  12. ZOLPIDEM [Concomitant]
     Active Substance: ZOLPIDEM\ZOLPIDEM TARTRATE
     Indication: SLEEP DISORDER
     Dosage: BEDTIME
     Dates: start: 201103
  13. ESTRADIOL. [Concomitant]
     Active Substance: ESTRADIOL
     Indication: MENOPAUSE
     Dosage: 0.375  ?1 DOT 2 TIMES A WEEK
     Dates: start: 201302
  14. RITALIN [Concomitant]
     Active Substance: METHYLPHENIDATE HYDROCHLORIDE
  15. AUBAGIO [Suspect]
     Active Substance: TERIFLUNOMIDE
     Indication: MULTIPLE SCLEROSIS
     Route: 048
     Dates: start: 20140204
  16. LOMOTIL [Concomitant]
     Active Substance: ATROPINE SULFATE\DIPHENOXYLATE HYDROCHLORIDE
     Indication: IRRITABLE BOWEL SYNDROME
     Dosage: 1AM+ 1PM
     Dates: start: 201012
  17. ADDERALL [Concomitant]
     Active Substance: AMPHETAMINE ASPARTATE\AMPHETAMINE SULFATE\DEXTROAMPHETAMINE SACCHARATE\DEXTROAMPHETAMINE SULFATE
  18. REMERON [Concomitant]
     Active Substance: MIRTAZAPINE
     Indication: DEPRESSION
     Dosage: BEDTIME
     Dates: start: 201101
  19. PROGESTERONE. [Concomitant]
     Active Substance: PROGESTERONE
     Indication: MENOPAUSE
     Dosage: COMPOUND CREAM APPLY AT BEDTIME
     Dates: start: 201303
  20. IRON [Concomitant]
     Active Substance: IRON
     Indication: BLOOD IRON DECREASED
     Dosage: THRICE WEEKLY
     Dates: start: 201309
  21. BUSPAR [Concomitant]
     Active Substance: BUSPIRONE HYDROCHLORIDE
  22. AUBAGIO [Suspect]
     Active Substance: TERIFLUNOMIDE
     Indication: MULTIPLE SCLEROSIS
     Route: 048
     Dates: start: 20131112

REACTIONS (48)
  - Sensory disturbance [Unknown]
  - Swollen tongue [Recovered/Resolved]
  - Muscular weakness [Unknown]
  - Gastrointestinal disorder [Unknown]
  - Vomiting [Unknown]
  - Myalgia [Unknown]
  - Pain [Unknown]
  - Feeling cold [Recovering/Resolving]
  - Nasopharyngitis [Unknown]
  - Economic problem [Unknown]
  - Gastrooesophageal reflux disease [Unknown]
  - Fall [Unknown]
  - Hot flush [Unknown]
  - Nervousness [Unknown]
  - Dry mouth [Unknown]
  - Hair growth abnormal [Not Recovered/Not Resolved]
  - Pain in extremity [Unknown]
  - Hypoaesthesia [Unknown]
  - Back pain [Unknown]
  - Burning sensation [Unknown]
  - Tongue discolouration [Recovered/Resolved]
  - Product packaging issue [Unknown]
  - Weight increased [Recovering/Resolving]
  - Swelling [Recovering/Resolving]
  - White blood cell count decreased [Unknown]
  - Alopecia [Recovering/Resolving]
  - Lip dry [Unknown]
  - Frequent bowel movements [Unknown]
  - Alopecia [Recovering/Resolving]
  - Weight decreased [Not Recovered/Not Resolved]
  - Hepatic enzyme increased [Recovered/Resolved]
  - Throat irritation [Unknown]
  - Eating disorder [Unknown]
  - Erythema [Unknown]
  - Abdominal distension [Unknown]
  - Road traffic accident [Unknown]
  - Exophthalmos [Unknown]
  - Feeling abnormal [Unknown]
  - Hypoaesthesia oral [Recovering/Resolving]
  - Cognitive disorder [Unknown]
  - Anxiety [Recovering/Resolving]
  - Vitamin B6 increased [Unknown]
  - Thyroid function test abnormal [Recovered/Resolved]
  - Musculoskeletal discomfort [Unknown]
  - Stress [Recovering/Resolving]
  - Fatigue [Unknown]
  - Hypoaesthesia oral [Recovered/Resolved]
  - Loss of employment [Unknown]

NARRATIVE: CASE EVENT DATE: 2013
